FAERS Safety Report 10166735 (Version 1)
Quarter: 2014Q2

REPORT INFORMATION
  Report Type: Spontaneous
  Country: US (occurrence: US)
  Receive Date: 20140512
  Receipt Date: 20140512
  Transmission Date: 20141212
  Serious: Yes (Other)
  Sender: FDA-Public Use
  Company Number: US-ELI_LILLY_AND_COMPANY-US201404005439

PATIENT
  Age: 59 Year
  Sex: Male

DRUGS (1)
  1. INSULIN HUMAN [Suspect]
     Indication: PRODUCT USED FOR UNKNOWN INDICATION
     Dosage: UNK
     Route: 058

REACTIONS (6)
  - Hepatic cirrhosis [Unknown]
  - Blood glucose increased [Unknown]
  - Feeling abnormal [Unknown]
  - Blood glucose decreased [Unknown]
  - Drug dose omission [Unknown]
  - Wrong technique in drug usage process [Unknown]
